FAERS Safety Report 23605432 (Version 1)
Quarter: 2024Q1

REPORT INFORMATION
  Report Type: Spontaneous
  Country: US (occurrence: US)
  Receive Date: 20240307
  Receipt Date: 20240307
  Transmission Date: 20240410
  Serious: Yes (Hospitalization, Other)
  Sender: FDA-Public Use
  Company Number: US-BRISTOL-MYERS SQUIBB COMPANY-2024-035776

PATIENT
  Age: 63 Year
  Sex: Male
  Weight: 99.79 kg

DRUGS (1)
  1. REVLIMID [Suspect]
     Active Substance: LENALIDOMIDE
     Indication: Plasma cell myeloma
     Dosage: TAKE 1 CAPSULE BY MOUTH EVERY 2 DAYS FOR 28 DAYS.
     Route: 048
     Dates: start: 20230224

REACTIONS (6)
  - Myocardial infarction [Not Recovered/Not Resolved]
  - Plasma cell myeloma recurrent [Unknown]
  - Catheter site haemorrhage [Recovered/Resolved]
  - Chest pain [Unknown]
  - Infection [Not Recovered/Not Resolved]
  - Off label use [Unknown]
